FAERS Safety Report 11650385 (Version 2)
Quarter: 2016Q1

REPORT INFORMATION
  Report Type: Spontaneous
  Country: US (occurrence: US)
  Receive Date: 20151021
  Receipt Date: 20160111
  Transmission Date: 20160525
  Serious: Yes (Life-Threatening, Other)
  Sender: FDA-Public Use
  Company Number: US-SEATTLE GENETICS-2014SGN01681

PATIENT
  Age: 60 Year
  Sex: Female
  Weight: 109 kg

DRUGS (9)
  1. ACETAMINOPHEN. [Concomitant]
     Active Substance: ACETAMINOPHEN
     Dosage: 650 MG, UNK
     Route: 048
     Dates: start: 20130916
  2. HEPARIN LOCK FLUSH [Concomitant]
     Active Substance: HEPARIN SODIUM
     Dosage: 3 ML, PRN
     Route: 042
     Dates: start: 20130916
  3. ADCETRIS [Suspect]
     Active Substance: BRENTUXIMAB VEDOTIN
     Indication: CHRONIC LYMPHOCYTIC LEUKAEMIA
     Dosage: 1.8 MG/KG, UNK
     Route: 042
     Dates: start: 20130812, end: 20131007
  4. DIPHENHYDRAMINE. [Concomitant]
     Active Substance: DIPHENHYDRAMINE
     Dosage: 25 MG, UNK
     Route: 042
     Dates: start: 20130916
  5. PROCHLORPERAZINE EDISYLATE. [Concomitant]
     Active Substance: PROCHLORPERAZINE EDISYLATE
     Dosage: 10 MG, PRN
     Route: 042
     Dates: start: 20130916
  6. DEXAMETHASONE SODIUM SULFATE [Concomitant]
     Active Substance: DEXAMETHASONE SODIUM SULFATE
     Dosage: 12 MG, UNK
     Route: 042
     Dates: start: 20130916
  7. LORAZEPAM. [Concomitant]
     Active Substance: LORAZEPAM
     Dosage: 0.5 MG, PRN
     Route: 042
     Dates: start: 20130916
  8. SODIUM CHLORIDE. [Concomitant]
     Active Substance: SODIUM CHLORIDE
     Dosage: 250 ML, UNK
     Route: 042
     Dates: start: 20130916
  9. MEPERIDINE HCL [Concomitant]
     Active Substance: MEPERIDINE HYDROCHLORIDE
     Dosage: 12.5 MG, PRN
     Route: 042
     Dates: start: 20130916

REACTIONS (2)
  - Infusion related reaction [Unknown]
  - Off label use [Unknown]

NARRATIVE: CASE EVENT DATE: 20130916
